FAERS Safety Report 7885642-3 (Version None)
Quarter: 2011Q4

REPORT INFORMATION
  Report Type: 
  Country: None (occurrence: None)
  Receive Date: 20111102
  Receipt Date: 20110628
  Transmission Date: 20120403
  Serious: No
  Sender: FDA-Public Use
  Company Number: US-AMGEN-USASP2011028867

PATIENT
  Age: 86 Year
  Sex: Female

DRUGS (3)
  1. LASIX [Concomitant]
     Dosage: 40 MG, QD
  2. ENBREL [Suspect]
     Indication: PRODUCT USED FOR UNKNOWN INDICATION
     Dosage: 50 MG, QWK
     Dates: start: 20110301, end: 20110527
  3. LASIX [Concomitant]

REACTIONS (3)
  - OEDEMA PERIPHERAL [None]
  - JOINT SWELLING [None]
  - DRUG INEFFECTIVE [None]
